FAERS Safety Report 13032749 (Version 1)
Quarter: 2016Q4

REPORT INFORMATION
  Report Type: Spontaneous
  Country: US (occurrence: US)
  Receive Date: 20161215
  Receipt Date: 20161215
  Transmission Date: 20170207
  Serious: Yes (Other)
  Sender: FDA-Public Use
  Company Number: US-BAXALTA-2016BLT009280

PATIENT
  Age: 29 Year
  Sex: Male
  Weight: 136 kg

DRUGS (4)
  1. ADVATE [Concomitant]
     Active Substance: ANTIHEMOPHILIC FACTOR, HUMAN RECOMBINANT
     Indication: HAEMOPHILIA
     Dosage: UNK
     Route: 065
  2. ADYNOVATE [Suspect]
     Active Substance: ANTIHEMOPHILIC FACTOR, HUMAN RECOMBINANT
     Indication: HAEMORRHAGE
     Dosage: 4440 U, UNK, TREAT SPONTANEOUS BLEED IN KNEE AND HIP BLEED
     Route: 065
     Dates: start: 20161130
  3. ADYNOVATE [Suspect]
     Active Substance: ANTIHEMOPHILIC FACTOR, HUMAN RECOMBINANT
     Indication: PROPHYLAXIS
     Dosage: 4440 U, UNK
     Route: 065
     Dates: start: 20161206, end: 201612
  4. ADYNOVATE [Suspect]
     Active Substance: ANTIHEMOPHILIC FACTOR, HUMAN RECOMBINANT
     Indication: HAEMOPHILIA
     Dosage: 6650 U,3X A WEEK, ON M,W, F AND ON DEMAND
     Route: 042
     Dates: start: 20160705

REACTIONS (5)
  - Chest discomfort [Recovered/Resolved]
  - Dehydration [Recovered/Resolved]
  - Haemarthrosis [Recovered/Resolved]
  - Spontaneous haemorrhage [Recovered/Resolved]
  - Dyspnoea [Recovered/Resolved]

NARRATIVE: CASE EVENT DATE: 20161116
